FAERS Safety Report 6475196-0 (Version None)
Quarter: 2009Q4

REPORT INFORMATION
  Report Type: 
  Country: None (occurrence: None)
  Receive Date: 20091204
  Receipt Date: 20090402
  Transmission Date: 20100525
  Serious: Yes (Hospitalization, Other)
  Sender: FDA-Public Use
  Company Number: US-ELI_LILLY_AND_COMPANY-US200904000743

PATIENT
  Sex: Female
  Weight: 149.66 kg

DRUGS (9)
  1. BYETTA [Suspect]
     Indication: TYPE 2 DIABETES MELLITUS
     Dosage: 5 UG, 2/D
     Route: 058
     Dates: start: 20071001, end: 20071101
  2. BYETTA [Suspect]
     Dosage: 10 UG, 2/D
     Route: 058
     Dates: start: 20071101, end: 20090301
  3. BYETTA [Suspect]
     Dosage: 5 UG, 2/D
     Route: 058
     Dates: start: 20090301
  4. RAMIPRIL [Concomitant]
     Indication: PROPHYLAXIS
     Dosage: UNK, UNKNOWN
  5. SIMVASTATIN [Concomitant]
     Indication: BLOOD CHOLESTEROL INCREASED
     Dosage: UNK, UNKNOWN
  6. TRICOR [Concomitant]
     Indication: BLOOD TRIGLYCERIDES INCREASED
     Dosage: UNK, UNKNOWN
  7. ACTOPLUS MET [Concomitant]
     Dosage: UNK, EACH EVENING
     Dates: end: 20090301
  8. ACTOPLUS MET [Concomitant]
     Dosage: UNK, EACH EVENING
     Dates: start: 20090301
  9. METFORMIN HCL [Concomitant]
     Dosage: UNK, UNKNOWN

REACTIONS (23)
  - ABDOMINAL PAIN UPPER [None]
  - BACK PAIN [None]
  - BLOOD GLUCOSE DECREASED [None]
  - BLOOD GLUCOSE INCREASED [None]
  - BLOOD THYROID STIMULATING HORMONE INCREASED [None]
  - BRADYPHRENIA [None]
  - CONFUSIONAL STATE [None]
  - DECREASED APPETITE [None]
  - DIABETES MELLITUS INADEQUATE CONTROL [None]
  - FEELING HOT [None]
  - GALLBLADDER DISORDER [None]
  - HYPERSOMNIA [None]
  - HYPOGLYCAEMIC UNCONSCIOUSNESS [None]
  - HYPOTENSION [None]
  - INJECTION SITE HAEMORRHAGE [None]
  - MUSCLE STRAIN [None]
  - NAUSEA [None]
  - NIGHTMARE [None]
  - SWELLING [None]
  - THERAPEUTIC REACTION TIME DECREASED [None]
  - THYROID DISORDER [None]
  - URTICARIA [None]
  - WEIGHT DECREASED [None]
